FAERS Safety Report 25435731 (Version 1)
Quarter: 2025Q2

REPORT INFORMATION
  Report Type: Spontaneous
  Country: US (occurrence: None)
  Receive Date: 20250613
  Receipt Date: 20250613
  Transmission Date: 20250716
  Serious: Yes (unspecified)
  Sender: FDA-CTU
  Company Number: None

PATIENT
  Age: 72 Year
  Sex: Male
  Weight: 77.4 kg

DRUGS (3)
  1. CAMCEVI [Suspect]
     Active Substance: LEUPROLIDE MESYLATE
     Indication: Prostate cancer
     Route: 058
     Dates: start: 20250529
  2. CAMCEVI [Suspect]
     Active Substance: LEUPROLIDE MESYLATE
     Indication: Blood testosterone
  3. CAMCEVI [Suspect]
     Active Substance: LEUPROLIDE MESYLATE
     Indication: Hormone suppression therapy

REACTIONS (6)
  - Injection site erythema [None]
  - Injection site induration [None]
  - Injection site discharge [None]
  - Infection [None]
  - Incorrect dose administered [None]
  - Therapeutic product effect incomplete [None]

NARRATIVE: CASE EVENT DATE: 20250529
